FAERS Safety Report 7674116-0 (Version None)
Quarter: 2011Q3

REPORT INFORMATION
  Report Type: 
  Country: None (occurrence: None)
  Receive Date: 20110808
  Receipt Date: 20110725
  Transmission Date: 20111222
  Serious: Yes (Other)
  Sender: FDA-Public Use
  Company Number: USA/USA/11/0019195

PATIENT
  Sex: Male

DRUGS (1)
  1. RISPERIDONE [Suspect]
     Indication: PRODUCT USED FOR UNKNOWN INDICATION
     Dosage: SOMETME BEFORE NOVEMBER 2009

REACTIONS (24)
  - THYROID DISORDER [None]
  - CRYING [None]
  - BLADDER DILATATION [None]
  - INCORRECT DRUG ADMINISTRATION DURATION [None]
  - DROOLING [None]
  - GAIT DISTURBANCE [None]
  - UNRESPONSIVE TO STIMULI [None]
  - DEFORMITY [None]
  - STUPOR [None]
  - TOURETTE'S DISORDER [None]
  - PERSONALITY DISORDER [None]
  - APHONIA [None]
  - MUTISM [None]
  - INTENTIONAL SELF-INJURY [None]
  - INSOMNIA [None]
  - PROSTATOMEGALY [None]
  - INAPPROPRIATE AFFECT [None]
  - CONVULSION [None]
  - FLUSHING [None]
  - INTERMITTENT EXPLOSIVE DISORDER [None]
  - INCORRECT DOSE ADMINISTERED [None]
  - PRURITUS [None]
  - TARDIVE DYSKINESIA [None]
  - TREMOR [None]
